FAERS Safety Report 18250437 (Version 4)
Quarter: 2020Q4

REPORT INFORMATION
  Report Type: Spontaneous
  Country: US (occurrence: US)
  Receive Date: 20200909
  Receipt Date: 20201230
  Transmission Date: 20210113
  Serious: Yes (Hospitalization, Disabling)
  Sender: FDA-Public Use
  Company Number: US-JNJFOC-A-NJ2020-200803

PATIENT
  Age: 14 Month
  Sex: Male
  Weight: 10.44 kg

DRUGS (16)
  1. TRACLEER [Suspect]
     Active Substance: BOSENTAN
     Dosage: 1/2 OF 32 MG TABLET BID
     Route: 048
  2. SILDENAFIL. [Concomitant]
     Active Substance: SILDENAFIL
     Dosage: 14 MG, TID
     Dates: start: 20190606
  3. PERIACTIN [Concomitant]
     Active Substance: CYPROHEPTADINE HYDROCHLORIDE
     Dosage: 2 MG, QD
  4. OXYCODONE [Concomitant]
     Active Substance: OXYCODONE
     Indication: PAIN MANAGEMENT
     Dosage: 0.56 MG EVERY 6 HOURS AS NEEDED
     Route: 065
     Dates: start: 202006, end: 202007
  5. FAMOTIDINE. [Concomitant]
     Active Substance: FAMOTIDINE
     Dosage: 6 MG, BID
  6. DIGOXIN. [Concomitant]
     Active Substance: DIGOXIN
     Dosage: 30 MCG, BID
     Dates: start: 20180823
  7. TRACLEER [Suspect]
     Active Substance: BOSENTAN
     Indication: PULMONARY ARTERIAL HYPERTENSION
     Dosage: 16 MG, BID
     Route: 048
     Dates: start: 20190927
  8. TRACLEER [Suspect]
     Active Substance: BOSENTAN
     Route: 048
  9. LASIX [Concomitant]
     Active Substance: FUROSEMIDE
     Dosage: 7 MG, QD
     Dates: start: 20180828
  10. OMEPRAZOLE. [Concomitant]
     Active Substance: OMEPRAZOLE
     Dosage: 8.4 MG, BID
  11. SILDENAFIL. [Concomitant]
     Active Substance: SILDENAFIL
     Dosage: 15 MG, QID
  12. FERROUS SULFATE. [Concomitant]
     Active Substance: FERROUS SULFATE
     Dosage: 3 ML, QD
  13. AMOXICILLIN. [Concomitant]
     Active Substance: AMOXICILLIN
     Dosage: 200 MG, QD
  14. BACITRACIN. [Concomitant]
     Active Substance: BACITRACIN
     Indication: INFECTION PROPHYLAXIS
     Route: 065
     Dates: start: 202006, end: 202007
  15. MIRALAX [Concomitant]
     Active Substance: POLYETHYLENE GLYCOL 3350
     Dosage: 1 TSP, QD
  16. ACETAMINOPHEN. [Concomitant]
     Active Substance: ACETAMINOPHEN
     Indication: PAIN MANAGEMENT
     Dosage: 166.4 MG/EVERY 6 HOURS AS NEEDED
     Route: 065
     Dates: start: 202006, end: 202007

REACTIONS (8)
  - Testicular operation [Unknown]
  - Anoplasty [Unknown]
  - Circumcision [Unknown]
  - Excessive granulation tissue [Unknown]
  - Anorectal operation [Recovered/Resolved]
  - Upper gastrointestinal haemorrhage [Recovered/Resolved]
  - Haematemesis [Recovered/Resolved]
  - Off label use [Unknown]

NARRATIVE: CASE EVENT DATE: 20180724
